FAERS Safety Report 4773566-X (Version None)
Quarter: 2005Q3

REPORT INFORMATION
  Report Type: 
  Country: None (occurrence: None)
  Receive Date: 20050920
  Receipt Date: 20050518
  Transmission Date: 20060218
  Serious: No
  Sender: FDA-Public Use
  Company Number: US-BRISTOL-MYERS SQUIBB COMPANY-12972865

PATIENT
  Age: 35 Year
  Sex: Male
  Weight: 86 kg

DRUGS (2)
  1. BUSPAR [Suspect]
     Dates: end: 20050401
  2. ZYPREXA [Concomitant]

REACTIONS (1)
  - MENTAL IMPAIRMENT [None]
